FAERS Safety Report 19140670 (Version 1)
Quarter: 2021Q2

REPORT INFORMATION
  Report Type: Spontaneous
  Country: US (occurrence: US)
  Receive Date: 20210415
  Receipt Date: 20210415
  Transmission Date: 20210717
  Serious: No
  Sender: FDA-Public Use
  Company Number: None

PATIENT
  Age: 58 Year
  Sex: Male
  Weight: 65.25 kg

DRUGS (3)
  1. LOSARTAN. [Concomitant]
     Active Substance: LOSARTAN
  2. VITAMINS [Concomitant]
     Active Substance: VITAMINS
  3. HYLENEX RECOMBINANT [Suspect]
     Active Substance: HYALURONIDASE (HUMAN RECOMBINANT)
     Indication: DERMAL FILLER INJECTION
     Dates: start: 20210203, end: 20210203

REACTIONS (4)
  - Skin discolouration [None]
  - Skin injury [None]
  - Off label use [None]
  - Eye injury [None]

NARRATIVE: CASE EVENT DATE: 20210203
